FAERS Safety Report 19578217 (Version 2)
Quarter: 2021Q4

REPORT INFORMATION
  Report Type: Spontaneous
  Country: JP (occurrence: JP)
  Receive Date: 20210719
  Receipt Date: 20211207
  Transmission Date: 20220304
  Serious: Yes (Hospitalization, Other)
  Sender: FDA-Public Use
  Company Number: JP-ELI_LILLY_AND_COMPANY-JP202107007393

PATIENT
  Age: 65 Year
  Sex: Male
  Weight: 66 kg

DRUGS (9)
  1. NECITUMUMAB [Suspect]
     Active Substance: NECITUMUMAB
     Indication: Lung squamous cell carcinoma stage III
     Dosage: 800 MG, UNKNOWN
     Route: 041
     Dates: start: 20210203, end: 20210210
  2. GEMZAR [Suspect]
     Active Substance: GEMCITABINE HYDROCHLORIDE
     Indication: Lung squamous cell carcinoma stage III
     Dosage: 1750 MG, UNKNOWN
     Route: 041
     Dates: start: 20210203, end: 20210210
  3. CISPLATIN [Suspect]
     Active Substance: CISPLATIN
     Indication: Lung squamous cell carcinoma stage III
     Dosage: 120 MG, UNKNOWN
     Route: 041
     Dates: start: 20210203, end: 20210203
  4. MAGNESIUM SULFATE [Concomitant]
     Active Substance: MAGNESIUM SULFATE
     Dosage: UNK
     Dates: start: 20210203, end: 20210203
  5. ALLOPURINOL [Concomitant]
     Active Substance: ALLOPURINOL
     Indication: Hyperuricaemia
     Route: 048
  6. ASPIRIN [Concomitant]
     Active Substance: ASPIRIN
     Indication: Lacunar infarction
     Dosage: UNK
     Route: 048
     Dates: start: 20210203
  7. ALOXI [Concomitant]
     Active Substance: PALONOSETRON HYDROCHLORIDE
     Dosage: UNK
     Dates: start: 20210203
  8. DEXAMETHASONE SODIUM PHOSPHATE [Concomitant]
     Active Substance: DEXAMETHASONE SODIUM PHOSPHATE
     Dosage: UNK
     Dates: start: 20210203, end: 20210210
  9. LYRICA [Concomitant]
     Active Substance: PREGABALIN
     Indication: Lung squamous cell carcinoma stage III
     Dosage: UNK
     Route: 048
     Dates: start: 20210202, end: 20210303

REACTIONS (6)
  - Septic shock [Recovered/Resolved]
  - Neutrophil count decreased [Recovered/Resolved]
  - Platelet count decreased [Recovered/Resolved]
  - Malignant neoplasm progression [Unknown]
  - White blood cell count decreased [Recovered/Resolved]
  - Dermatitis acneiform [Recovered/Resolved]

NARRATIVE: CASE EVENT DATE: 20210216
